FAERS Safety Report 15476265 (Version 1)
Quarter: 2018Q4

REPORT INFORMATION
  Report Type: Report from Study
  Country: CA (occurrence: CA)
  Receive Date: 20181009
  Receipt Date: 20181009
  Transmission Date: 20190205
  Serious: Yes (Other)
  Sender: FDA-Public Use
  Company Number: PHHY2015CA144237

PATIENT
  Age: 46 Year
  Sex: Female

DRUGS (1)
  1. GILENYA [Suspect]
     Active Substance: FINGOLIMOD HYDROCHLORIDE
     Indication: PRODUCT USED FOR UNKNOWN INDICATION
     Dosage: UNK
     Route: 048
     Dates: start: 20140120, end: 20160819

REACTIONS (6)
  - Syncope [Recovering/Resolving]
  - Multiple sclerosis relapse [Recovering/Resolving]
  - Nausea [Unknown]
  - Vertigo [Unknown]
  - Stress [Unknown]
  - Anxiety [Unknown]

NARRATIVE: CASE EVENT DATE: 201511
